FAERS Safety Report 4919172-5 (Version None)
Quarter: 2006Q1

REPORT INFORMATION
  Report Type: 
  Country: None (occurrence: None)
  Receive Date: 20060222
  Receipt Date: 20060127
  Transmission Date: 20060701
  Serious: Yes (Other)
  Sender: FDA-Public Use
  Company Number: JP-BRISTOL-MYERS SQUIBB COMPANY-13262803

PATIENT
  Age: 82 Year
  Sex: Male

DRUGS (13)
  1. MAXIPIME [Suspect]
     Indication: PYREXIA
     Route: 065
     Dates: start: 20060112, end: 20060114
  2. CALSLOT [Suspect]
     Indication: HYPERTENSION
     Route: 048
     Dates: start: 19930101, end: 20060115
  3. BLOPRESS [Suspect]
     Indication: HYPERTENSION
     Route: 048
     Dates: end: 20060115
  4. NITROPEN [Suspect]
     Indication: ANGINA PECTORIS
     Route: 060
     Dates: start: 20060114, end: 20060114
  5. ALBUMIN (HUMAN) [Concomitant]
     Route: 042
     Dates: start: 20060114, end: 20060114
  6. TAKEPRON [Concomitant]
     Route: 048
  7. MUCOSTA [Concomitant]
     Route: 048
  8. ROCALTROL [Concomitant]
     Route: 048
  9. CEROCRAL [Concomitant]
     Route: 048
  10. CYANOCOBALAMIN [Concomitant]
     Route: 048
  11. PURSENNID [Concomitant]
     Route: 048
  12. ASPIRIN [Concomitant]
     Route: 048
  13. EPOGEN [Concomitant]

REACTIONS (1)
  - BLOOD PRESSURE DECREASED [None]
